FAERS Safety Report 12965791 (Version 2)
Quarter: 2017Q1

REPORT INFORMATION
  Report Type: Spontaneous
  Country: SE (occurrence: SE)
  Receive Date: 20161122
  Receipt Date: 20170130
  Transmission Date: 20170428
  Serious: Yes (Death, Other)
  Sender: FDA-Public Use
  Company Number: SE-GILEAD-2016-0243471

PATIENT
  Age: 52 Year
  Sex: Male
  Weight: 136 kg

DRUGS (3)
  1. HARVONI [Suspect]
     Active Substance: LEDIPASVIR\SOFOSBUVIR
     Indication: PRODUCT USED FOR UNKNOWN INDICATION
     Dosage: 1 DF, UNK
     Route: 048
     Dates: start: 20070916
  2. ORUDIS [Concomitant]
     Active Substance: KETOPROFEN
     Dosage: 200 MG, QD
     Route: 048
     Dates: start: 20150216
  3. NORGESIC                           /00040301/ [Concomitant]
     Dosage: 1 DF, TID
     Route: 048
     Dates: start: 20150216

REACTIONS (1)
  - Death [Fatal]
